FAERS Safety Report 26099217 (Version 2)
Quarter: 2025Q4

REPORT INFORMATION
  Report Type: Spontaneous
  Country: EU (occurrence: EU)
  Receive Date: 20251128
  Receipt Date: 20251227
  Transmission Date: 20260118
  Serious: Yes (Hospitalization, Other)
  Sender: AUROBINDO
  Company Number: EU-TEVA-VS-3390864

PATIENT
  Age: 47 Year
  Sex: Female

DRUGS (11)
  1. TOPIRAMATE [Suspect]
     Active Substance: TOPIRAMATE
     Indication: Prophylaxis
     Dosage: 50 MILLIGRAM, ONCE A DAY
     Route: 065
     Dates: start: 2016
  2. TRAMADOL [Suspect]
     Active Substance: TRAMADOL
     Indication: Migraine
     Dosage: OFTEN AT THE MAXIMUM DAILY DOSE
     Route: 065
  3. SUMATRIPTAN [Suspect]
     Active Substance: SUMATRIPTAN
     Indication: Migraine
     Dosage: 50 MILLIGRAM
     Route: 061
  4. ACETAMINOPHEN\TRAMADOL [Suspect]
     Active Substance: ACETAMINOPHEN\TRAMADOL
     Indication: Migraine
     Dosage: OFTEN AT THE MAXIMUM DAILY DOSE
     Route: 065
  5. METAMIZOLE [Suspect]
     Active Substance: METAMIZOLE
     Indication: Migraine
     Dosage: 1 GRAM
     Route: 065
  6. CINNARIZINE [Suspect]
     Active Substance: CINNARIZINE
     Indication: Migraine
     Dosage: 50 MILLIGRAM, ONCE A DAY
     Route: 065
     Dates: start: 202401
  7. INDOMETHACIN [Suspect]
     Active Substance: INDOMETHACIN
     Indication: Migraine
     Dosage: 100 MILLIGRAM
  8. FREMANEZUMAB [Concomitant]
     Active Substance: FREMANEZUMAB
     Indication: Migraine
     Dosage: 675 MILLIGRAM
     Route: 065
  9. DULOXETINE [Concomitant]
     Active Substance: DULOXETINE
     Indication: Migraine prophylaxis
     Dosage: UNK
     Route: 065
  10. PREGABALIN [Concomitant]
     Active Substance: PREGABALIN
     Indication: Anxiety
     Dosage: UNK
     Route: 065
  11. PREGABALIN [Concomitant]
     Active Substance: PREGABALIN
     Indication: Panic attack

REACTIONS (11)
  - Drug abuse [Unknown]
  - Medication overuse headache [Unknown]
  - Disturbance in attention [Unknown]
  - Adverse drug reaction [Unknown]
  - Weight decreased [Unknown]
  - Alopecia [Unknown]
  - Sedation [Unknown]
  - Loss of personal independence in daily activities [Unknown]
  - Drug intolerance [Unknown]
  - Therapeutic product effect incomplete [Unknown]
  - Drug ineffective [Unknown]

NARRATIVE: CASE EVENT DATE: 20240101
